FAERS Safety Report 9736169 (Version 1)
Quarter: 2013Q4

REPORT INFORMATION
  Report Type: Report from Study
  Country: ES (occurrence: ES)
  Receive Date: 20131206
  Receipt Date: 20131206
  Transmission Date: 20140711
  Serious: Yes (Hospitalization, Other)
  Sender: FDA-Public Use
  Company Number: ES-ROCHE-1308482

PATIENT
  Age: 27 Year
  Sex: Female

DRUGS (8)
  1. CELLCEPT [Suspect]
     Indication: PRODUCT USED FOR UNKNOWN INDICATION
     Route: 065
  2. CELLCEPT [Suspect]
     Route: 065
  3. VALGANCICLOVIR [Suspect]
     Indication: PRODUCT USED FOR UNKNOWN INDICATION
     Route: 065
  4. PREDNISONE [Concomitant]
     Route: 065
  5. ADVAGRAF [Concomitant]
     Route: 065
  6. NEXIUM [Concomitant]
     Route: 065
  7. RED BLOOD CELLS [Concomitant]
  8. SULFAMETHOXAZOLE/TRIMETHOPRIM [Concomitant]
     Route: 065

REACTIONS (4)
  - Erythema infectiosum [Recovering/Resolving]
  - Aplasia pure red cell [Unknown]
  - Urinary tract infection [Unknown]
  - Leukopenia [Unknown]
